FAERS Safety Report 9369339 (Version 1)
Quarter: 2013Q2

REPORT INFORMATION
  Report Type: Spontaneous
  Country: SE (occurrence: SE)
  Receive Date: 20130626
  Receipt Date: 20130626
  Transmission Date: 20140414
  Serious: Yes (Other)
  Sender: FDA-Public Use
  Company Number: SE-MYLANLABS-2013S1013210

PATIENT
  Age: 32 Year
  Sex: Male

DRUGS (7)
  1. KLOMIPRAMIN [Suspect]
     Indication: PRODUCT USED FOR UNKNOWN INDICATION
     Dates: start: 201303
  2. ANAFRANIL [Suspect]
     Indication: PRODUCT USED FOR UNKNOWN INDICATION
  3. OMEPRAZOLE [Concomitant]
     Indication: DYSPEPSIA
  4. PROPAVAN [Concomitant]
     Indication: INSOMNIA
  5. IMOVANE [Concomitant]
     Indication: INSOMNIA
  6. GAVISCON [Concomitant]
     Indication: DYSPEPSIA
  7. LERGIGAN /00033002/ [Concomitant]
     Indication: PRODUCT USED FOR UNKNOWN INDICATION

REACTIONS (5)
  - Suicide attempt [Unknown]
  - Intentional self-injury [Unknown]
  - Dry mouth [Unknown]
  - Weight increased [Unknown]
  - Frequent bowel movements [Unknown]
